FAERS Safety Report 23935456 (Version 1)
Quarter: 2024Q2

REPORT INFORMATION
  Report Type: Spontaneous
  Country: US (occurrence: US)
  Receive Date: 20240604
  Receipt Date: 20240604
  Transmission Date: 20240716
  Serious: No
  Sender: FDA-Public Use
  Company Number: US-MankindUS-000168

PATIENT
  Sex: Male

DRUGS (1)
  1. OMEGA-3-ACID ETHYL ESTERS [Suspect]
     Active Substance: OMEGA-3-ACID ETHYL ESTERS
     Indication: Product used for unknown indication
     Dosage: STRENGTH: 1 GM, 120 CAPS
     Route: 048

REACTIONS (3)
  - Product colour issue [Unknown]
  - Product physical issue [Unknown]
  - Poor quality product administered [Unknown]
